FAERS Safety Report 5427558-8 (Version None)
Quarter: 2007Q3

REPORT INFORMATION
  Report Type: 
  Country: None (occurrence: None)
  Receive Date: 20070828
  Receipt Date: 20070823
  Transmission Date: 20080115
  Serious: Yes (Other)
  Sender: FDA-Public Use
  Company Number: A0676075A

PATIENT
  Sex: Female

DRUGS (1)
  1. VERAMYST [Suspect]
     Dosage: 2SPR PER DAY
     Route: 045
     Dates: start: 20070823, end: 20070823

REACTIONS (2)
  - EYE HAEMORRHAGE [None]
  - EYE PAIN [None]
